FAERS Safety Report 24443956 (Version 2)
Quarter: 2024Q4

REPORT INFORMATION
  Report Type: Report from Study
  Country: US (occurrence: US)
  Receive Date: 20241016
  Receipt Date: 20241017
  Transmission Date: 20250115
  Serious: No
  Sender: ROCHE
  Company Number: US-ROCHE-2623537

PATIENT
  Age: 51 Year
  Sex: Female

DRUGS (5)
  1. RITUXAN [Suspect]
     Active Substance: RITUXIMAB
     Indication: Scleritis
     Dosage: ON DAY 1 AND DAY 15 AND THEN EVERY 6 MONTHS, DATE OF TREATMENT: 11/JUL/2023
     Route: 041
  2. RITUXAN [Suspect]
     Active Substance: RITUXIMAB
     Indication: Iridocyclitis
     Dosage: 100MG/10ML SOL
     Route: 041
  3. RITUXAN [Suspect]
     Active Substance: RITUXIMAB
     Dosage: DAY 1 AND DAY 15 THEN EVERY 20 WEEK
     Route: 041
  4. NAPROSYN [Concomitant]
     Active Substance: NAPROXEN
     Route: 065
  5. OMEPRAZOLE [Concomitant]
     Active Substance: OMEPRAZOLE
     Route: 065

REACTIONS (2)
  - Off label use [Unknown]
  - No adverse event [Unknown]
